FAERS Safety Report 10170359 (Version 2)
Quarter: 2014Q2

REPORT INFORMATION
  Report Type: Spontaneous
  Country: US (occurrence: US)
  Receive Date: 20140513
  Receipt Date: 20140604
  Transmission Date: 20141212
  Serious: No
  Sender: FDA-Public Use
  Company Number: US-009507513-1404USA014239

PATIENT
  Sex: Female
  Weight: 78.91 kg

DRUGS (2)
  1. OXYTROL FOR WOMEN [Suspect]
     Indication: POLLAKIURIA
     Dosage: 1 DF, Q4D
     Route: 062
     Dates: start: 201404, end: 201405
  2. OXYTROL FOR WOMEN [Suspect]
     Indication: URINARY INCONTINENCE

REACTIONS (2)
  - Application site erythema [Recovered/Resolved]
  - Drug ineffective [Unknown]
